FAERS Safety Report 5838603-X (Version None)
Quarter: 2008Q3

REPORT INFORMATION
  Report Type: 
  Country: None (occurrence: None)
  Receive Date: 20080808
  Receipt Date: 20080606
  Transmission Date: 20090109
  Serious: No
  Sender: FDA-Public Use
  Company Number: A0729946A

PATIENT
  Age: 2 Year
  Sex: Male

DRUGS (1)
  1. ALTABAX [Suspect]
     Indication: SKIN BACTERIAL INFECTION
     Route: 061

REACTIONS (2)
  - APPLICATION SITE IRRITATION [None]
  - APPLICATION SITE PAIN [None]
